FAERS Safety Report 5845555-5 (Version None)
Quarter: 2008Q3

REPORT INFORMATION
  Report Type: 
  Country: None (occurrence: None)
  Receive Date: 20080814
  Receipt Date: 20080807
  Transmission Date: 20090109
  Serious: Yes (Other)
  Sender: FDA-Public Use
  Company Number: US-JNJCH-2008020837

PATIENT
  Age: 76 Year
  Sex: Male
  Weight: 78 kg

DRUGS (6)
  1. ZYRTEC [Suspect]
     Indication: SINUS HEADACHE
     Dosage: TEXT:10 MG, 1 1/2 TIMES
     Route: 048
     Dates: start: 20080806, end: 20080807
  2. ZYRTEC [Suspect]
     Indication: SNEEZING
  3. TRANXENE [Concomitant]
     Indication: ANXIETY
     Dosage: TEXT:15 MG
     Route: 065
  4. CARDIZEM [Concomitant]
     Dosage: TEXT:240 MG
     Route: 065
  5. ARMOUR THYROID [Concomitant]
     Indication: THYROID DISORDER
     Dosage: TEXT:60 MG
     Route: 065
  6. ANTIEMETICS AND ANTINAUSEANTS [Concomitant]
     Indication: DIZZINESS
     Dosage: TEXT:6.25 MG
     Route: 065

REACTIONS (3)
  - DIZZINESS [None]
  - GAIT DISTURBANCE [None]
  - SOMNOLENCE [None]
